FAERS Safety Report 9021010 (Version 1)
Quarter: 2013Q1

REPORT INFORMATION
  Report Type: Spontaneous
  Country: US (occurrence: US)
  Receive Date: 20130119
  Receipt Date: 20130119
  Transmission Date: 20140127
  Serious: No
  Sender: FDA-Public Use
  Company Number: US-ALLERGAN-1200310US

PATIENT
  Age: 50 Year
  Sex: Female
  Weight: 53.52 kg

DRUGS (9)
  1. BOTOX COSMETIC [Suspect]
     Dosage: 6 UNITS, SINGLE
     Route: 030
     Dates: start: 20100819, end: 20100819
  2. ZOLOFT [Concomitant]
     Indication: PRODUCT USED FOR UNKNOWN INDICATION
  3. XANAX [Concomitant]
     Indication: PRODUCT USED FOR UNKNOWN INDICATION
  4. MULTIVITAMINES WITH IRON [Concomitant]
     Indication: PRODUCT USED FOR UNKNOWN INDICATION
  5. BOTOX COSMETIC [Suspect]
     Indication: SKIN WRINKLING
     Dosage: 1.5 UNITS, SINGLE
     Route: 030
     Dates: start: 20100917, end: 20100917
  6. BOTOX COSMETIC [Suspect]
     Indication: SKIN WRINKLING
     Dosage: 1 UNITS, SINGLE
     Route: 030
     Dates: start: 20100917, end: 20100917
  7. BOTOX COSMETIC [Suspect]
     Indication: SKIN WRINKLING
     Dosage: 1 UNITS, SINGLE
     Route: 030
     Dates: start: 20100917, end: 20100917
  8. BOTOX COSMETIC [Suspect]
     Indication: SKIN WRINKLING
     Dosage: 24 UNITS, SINGLE
     Route: 030
     Dates: start: 20100819, end: 20100819
  9. BOTOX COSMETIC [Suspect]
     Dosage: 12 UNITS, SINGLE
     Route: 030
     Dates: start: 20100819, end: 20100819

REACTIONS (15)
  - Cytogenetic abnormality [Not Recovered/Not Resolved]
  - Lipoatrophy [Not Recovered/Not Resolved]
  - Lipoatrophy [Not Recovered/Not Resolved]
  - Injection site discolouration [Unknown]
  - Papule [Not Recovered/Not Resolved]
  - Secretion discharge [Not Recovered/Not Resolved]
  - Wrong technique in drug usage process [Unknown]
  - Weight decreased [Unknown]
  - Skin exfoliation [Unknown]
  - Secretion discharge [Unknown]
  - Face oedema [Unknown]
  - Madarosis [Not Recovered/Not Resolved]
  - Injection site reaction [Unknown]
  - Facial paresis [Not Recovered/Not Resolved]
  - Depression [Not Recovered/Not Resolved]
